FAERS Safety Report 7056164-7 (Version None)
Quarter: 2010Q4

REPORT INFORMATION
  Report Type: 
  Country: None (occurrence: None)
  Receive Date: 20101018
  Receipt Date: 20100409
  Transmission Date: 20110411
  Serious: No
  Sender: FDA-Public Use
  Company Number: 2010-00866

PATIENT
  Age: 46 Year
  Sex: Female
  Weight: 79.3795 kg

DRUGS (2)
  1. ZICAM COLD REMEDY PLUS LIQUI-LOZ [Suspect]
     Dosage: BID X 2 DAYS
     Dates: start: 20100201, end: 20100406
  2. SYNTHROID [Concomitant]

REACTIONS (2)
  - AGEUSIA [None]
  - PRODUCT TASTE ABNORMAL [None]
